FAERS Safety Report 8594904-6 (Version None)
Quarter: 2012Q3

REPORT INFORMATION
  Report Type: 
  Country: None (occurrence: None)
  Receive Date: 20120815
  Receipt Date: 20120807
  Transmission Date: 20120928
  Serious: Yes (Death)
  Sender: FDA-Public Use
  Company Number: 2012SP002277

PATIENT
  Age: 19 Year
  Sex: Male
  Weight: 80 kg

DRUGS (1)
  1. OMNARIS [Suspect]
     Indication: RHINITIS
     Route: 045
     Dates: start: 20111213

REACTIONS (1)
  - ROAD TRAFFIC ACCIDENT [None]
